FAERS Safety Report 23096780 (Version 2)
Quarter: 2023Q4

REPORT INFORMATION
  Report Type: Spontaneous
  Country: US (occurrence: US)
  Receive Date: 20231023
  Receipt Date: 20231211
  Transmission Date: 20240110
  Serious: No
  Sender: FDA-Public Use
  Company Number: US-PFIZER INC-202300334891

PATIENT
  Age: 74 Year
  Sex: Female
  Weight: 90.72 kg

DRUGS (2)
  1. METHIMAZOLE [Suspect]
     Active Substance: METHIMAZOLE
     Indication: Hyperthyroidism
     Dosage: 5 MG, 1X/DAY
     Route: 048
     Dates: start: 2022
  2. METHIMAZOLE [Suspect]
     Active Substance: METHIMAZOLE
     Dosage: 5 MG, ALTERNATE DAY
     Route: 048
     Dates: start: 20230915

REACTIONS (2)
  - Alopecia [Not Recovered/Not Resolved]
  - Off label use [Unknown]

NARRATIVE: CASE EVENT DATE: 20220101
